FAERS Safety Report 9398508 (Version 2)
Quarter: 2013Q3

REPORT INFORMATION
  Report Type: Report from Study
  Country: BR (occurrence: BR)
  Receive Date: 20130712
  Receipt Date: 20130718
  Transmission Date: 20140515
  Serious: Yes (Disabling)
  Sender: FDA-Public Use
  Company Number: BR-ABBOTT-13P-020-1116436-00

PATIENT
  Age: 44 Year
  Sex: Female
  Weight: 76 kg

DRUGS (13)
  1. HUMIRA [Suspect]
     Indication: PSORIASIS
     Route: 058
     Dates: start: 20130422
  2. ARAVA [Concomitant]
     Indication: PRODUCT USED FOR UNKNOWN INDICATION
     Dosage: 20 MG DAILY
     Route: 048
     Dates: start: 201204
  3. IBUPROFEN [Concomitant]
     Indication: PAIN
     Dosage: 1200 MG DAILY
     Route: 048
     Dates: start: 201211
  4. FLUOXETINE [Concomitant]
     Indication: DEPRESSION
     Dosage: 50 MG DAILY
     Route: 048
     Dates: start: 2011
  5. DIPYRONE [Concomitant]
     Indication: PAIN
     Route: 048
     Dates: start: 201211
  6. OMEPRAZOLE [Concomitant]
     Indication: GASTRIC DISORDER
     Dosage: 2 TABLETS DAILY
     Route: 048
  7. AMITRIPTYLINE [Concomitant]
     Indication: ANXIOLYTIC THERAPY
     Dosage: 25 MG DAILY
     Route: 048
     Dates: start: 2011
  8. AMITRIPTYLINE [Concomitant]
     Indication: INSOMNIA
  9. DIAZEPAM [Concomitant]
     Indication: SEDATIVE THERAPY
     Dosage: 5 MG DAILY
     Route: 048
     Dates: start: 201306
  10. NIMESULIDE [Concomitant]
     Indication: PRODUCT USED FOR UNKNOWN INDICATION
     Dosage: 300 MG DAILY
     Route: 048
     Dates: start: 20130701
  11. AEROLIN [Concomitant]
     Indication: FATIGUE
     Dosage: 10 ML DAILY OF 2 MG/5 ML FORMULATION
     Route: 048
  12. CODEIN [Concomitant]
     Indication: PRODUCT USED FOR UNKNOWN INDICATION
     Dosage: 30 MG DAILY
     Route: 048
     Dates: start: 20130624
  13. FOLIC ACID [Concomitant]
     Indication: PRODUCT USED FOR UNKNOWN INDICATION
     Dosage: 1 TABLET DAILY
     Route: 048
     Dates: start: 201301

REACTIONS (6)
  - Blindness [Not Recovered/Not Resolved]
  - Injection site pruritus [Recovered/Resolved]
  - Pain [Not Recovered/Not Resolved]
  - Insomnia [Recovering/Resolving]
  - Pain in extremity [Not Recovered/Not Resolved]
  - Mobility decreased [Unknown]
